FAERS Safety Report 7930914-7 (Version None)
Quarter: 2011Q4

REPORT INFORMATION
  Report Type: 
  Country: None (occurrence: None)
  Receive Date: 20111121
  Receipt Date: 20111115
  Transmission Date: 20120403
  Serious: Yes (Hospitalization)
  Sender: FDA-Public Use
  Company Number: US-AMGEN-USASP2011060361

PATIENT
  Age: 62 Year
  Sex: Female

DRUGS (2)
  1. ENBREL [Suspect]
     Indication: RHEUMATOID ARTHRITIS
     Dosage: 50 MG, QWK
     Dates: start: 20091106
  2. METHOTREXATE [Concomitant]
     Dosage: UNK
     Dates: start: 20081201

REACTIONS (7)
  - INJECTION SITE PAIN [None]
  - HEART RATE INCREASED [None]
  - WHITE BLOOD CELL COUNT DECREASED [None]
  - EPISTAXIS [None]
  - PLATELET COUNT DECREASED [None]
  - RED BLOOD CELL COUNT DECREASED [None]
  - RECTAL HAEMORRHAGE [None]
